FAERS Safety Report 6773519-6 (Version None)
Quarter: 2010Q2

REPORT INFORMATION
  Report Type: 
  Country: None (occurrence: None)
  Receive Date: 20100616
  Receipt Date: 20100609
  Transmission Date: 20101027
  Serious: No
  Sender: FDA-Public Use
  Company Number: US-ABBOTT-10P-163-0651215-00

PATIENT
  Sex: Female
  Weight: 86.26 kg

DRUGS (5)
  1. TRILIPIX [Suspect]
     Indication: BLOOD CHOLESTEROL INCREASED
     Dates: start: 20100604, end: 20100606
  2. ENBREL [Concomitant]
     Indication: PSORIASIS
  3. LEXAPRO [Concomitant]
     Indication: ANXIETY
  4. VITAMIN D [Concomitant]
     Indication: VITAMIN SUPPLEMENTATION
  5. MULTIPLE VITAMINS [Concomitant]
     Indication: VITAMIN SUPPLEMENTATION

REACTIONS (6)
  - ANXIETY [None]
  - CHEST DISCOMFORT [None]
  - FEELING JITTERY [None]
  - INSOMNIA [None]
  - MYALGIA [None]
  - NAUSEA [None]
